FAERS Safety Report 24359138 (Version 1)
Quarter: 2024Q3

REPORT INFORMATION
  Report Type: Report from Study
  Country: CN (occurrence: CN)
  Receive Date: 20240924
  Receipt Date: 20240924
  Transmission Date: 20241016
  Serious: No
  Sender: Unknown Manufacturer
  Company Number: CN-CSTONE PHARMACEUTICALS (SUZHOU) CO., LTD.-2024CN00499

PATIENT

DRUGS (3)
  1. PRALSETINIB [Suspect]
     Active Substance: PRALSETINIB
     Indication: Non-small cell lung cancer
     Dosage: 400 MILLIGRAM, QD
     Route: 048
     Dates: start: 202306
  2. PRALSETINIB [Suspect]
     Active Substance: PRALSETINIB
     Dosage: 300 MILLIGRAM, QD
     Route: 048
  3. PRALSETINIB [Suspect]
     Active Substance: PRALSETINIB
     Dosage: 200 MILLIGRAM, QD
     Route: 048

REACTIONS (1)
  - Rash [Recovering/Resolving]
